FAERS Safety Report 5631923-3 (Version None)
Quarter: 2008Q1

REPORT INFORMATION
  Report Type: 
  Country: None (occurrence: None)
  Receive Date: 20080212
  Receipt Date: 20080130
  Transmission Date: 20080703
  Serious: No
  Sender: FDA-Public Use
  Company Number: 2008-171819-NL

PATIENT
  Age: 5 Year
  Sex: Male

DRUGS (11)
  1. DEXAMETHASONE TAB [Suspect]
     Indication: CHEMOTHERAPY
  2. ASPARAGINASE [Suspect]
     Indication: CHEMOTHERAPY
  3. VINCRISTINE [Concomitant]
  4. FENTANYL [Concomitant]
  5. PROPOFOL [Concomitant]
  6. ATRACURIUM BESYLATE [Concomitant]
  7. OXYGEN [Concomitant]
  8. ISOFLURANE [Concomitant]
  9. NEOSTIGMINE [Concomitant]
  10. GLYCOPYRROLATE [Concomitant]
  11. SEVOFLURANE [Concomitant]

REACTIONS (3)
  - ANAESTHETIC COMPLICATION [None]
  - COAGULOPATHY [None]
  - HYPERLIPIDAEMIA [None]
